FAERS Safety Report 5929378-4 (Version None)
Quarter: 2008Q4

REPORT INFORMATION
  Report Type: 
  Country: None (occurrence: None)
  Receive Date: 20081017
  Receipt Date: 20081009
  Transmission Date: 20090506
  Serious: Yes (Hospitalization)
  Sender: FDA-Public Use
  Company Number: AZADE200800368

PATIENT
  Age: 49 Year
  Sex: Female
  Weight: 120 kg

DRUGS (1)
  1. VIDAZA [Suspect]
     Dosage: (78 MG/M2), SUBCUTANEOUS
     Route: 058
     Dates: start: 20071228

REACTIONS (2)
  - PNEUMONIA FUNGAL [None]
  - RESPIRATORY FAILURE [None]
